FAERS Safety Report 11463186 (Version 2)
Quarter: 2015Q4

REPORT INFORMATION
  Report Type: Report from Study
  Country: US (occurrence: US)
  Receive Date: 20150905
  Receipt Date: 20151007
  Transmission Date: 20160304
  Serious: No
  Sender: FDA-Public Use
  Company Number: PHEH2015US017019

PATIENT
  Age: 55 Year
  Sex: Female

DRUGS (1)
  1. GILENYA [Suspect]
     Active Substance: FINGOLIMOD HYDROCHLORIDE
     Indication: MULTIPLE SCLEROSIS
     Dosage: 0.5 MG, QD
     Route: 048
     Dates: start: 20150825

REACTIONS (4)
  - Diarrhoea [Recovering/Resolving]
  - Abdominal discomfort [Recovering/Resolving]
  - Influenza [Recovering/Resolving]
  - Muscle spasms [Recovering/Resolving]

NARRATIVE: CASE EVENT DATE: 20150828
